FAERS Safety Report 5301553-1 (Version None)
Quarter: 2007Q2

REPORT INFORMATION
  Report Type: 
  Country: None (occurrence: None)
  Receive Date: 20070412
  Receipt Date: 20070403
  Transmission Date: 20071010
  Serious: Yes (Hospitalization)
  Sender: FDA-Public Use
  Company Number: GXKR2007SN03140

PATIENT
  Age: 32 Year
  Sex: Female

DRUGS (1)
  1. IBUPROFEN [Suspect]
     Dosage: 2 TABLETS
     Dates: start: 19980101

REACTIONS (5)
  - ASTHMA [None]
  - CONDITION AGGRAVATED [None]
  - GASTRITIS [None]
  - NASAL POLYPS [None]
  - SINUSITIS [None]
